FAERS Safety Report 9264361 (Version 1)
Quarter: 2013Q2

REPORT INFORMATION
  Report Type: Spontaneous
  Country: GB (occurrence: GB)
  Receive Date: 20130430
  Receipt Date: 20130430
  Transmission Date: 20140414
  Serious: Yes (Death, Hospitalization, Other)
  Sender: FDA-Public Use
  Company Number: GB-BAXTER-2013BAX014150

PATIENT
  Age: 74 Year
  Sex: Male

DRUGS (1)
  1. DIANEAL PD4 GLUCOSE 1.36% W/V / 13.6 MG/ML [Suspect]
     Indication: RENAL FAILURE CHRONIC
     Route: 033
     Dates: start: 20090930, end: 20130411

REACTIONS (8)
  - Myocardial infarction [Fatal]
  - Sepsis [Unknown]
  - Skin ulcer [Unknown]
  - Peritonitis bacterial [Unknown]
  - Cardiac failure [Unknown]
  - General physical health deterioration [Unknown]
  - Colitis ulcerative [Unknown]
  - Asthenia [Unknown]
